FAERS Safety Report 4722431-2 (Version None)
Quarter: 2005Q3

REPORT INFORMATION
  Report Type: 
  Country: None (occurrence: None)
  Receive Date: 20050722
  Receipt Date: 20050414
  Transmission Date: 20060218
  Serious: No
  Sender: FDA-Public Use
  Company Number: US-GLAXOSMITHKLINE-A0554452A

PATIENT
  Age: 67 Year
  Sex: Male
  Weight: 90 kg

DRUGS (5)
  1. AVANDIA [Suspect]
     Dosage: 8MG UNKNOWN
     Route: 048
     Dates: start: 20031002, end: 20050404
  2. ATENOLOL [Concomitant]
     Dosage: 100MG TWICE PER DAY
  3. AMARYL [Concomitant]
     Dosage: 8MG PER DAY
  4. METFORMIN [Concomitant]
     Dosage: 500MG TWICE PER DAY
  5. LOTREL [Concomitant]

REACTIONS (3)
  - COUGH [None]
  - DYSPNOEA [None]
  - FATIGUE [None]
